FAERS Safety Report 4966407-9 (Version None)
Quarter: 2006Q2

REPORT INFORMATION
  Report Type: 
  Country: None (occurrence: None)
  Receive Date: 20060407
  Receipt Date: 20050823
  Transmission Date: 20061013
  Serious: Yes (Other)
  Sender: FDA-Public Use
  Company Number: US-MERCK-0508USA03880

PATIENT
  Age: 73 Year
  Sex: Male
  Weight: 95 kg

DRUGS (7)
  1. VIOXX [Suspect]
     Indication: GOUTY ARTHRITIS
     Route: 048
     Dates: start: 19991028, end: 19991031
  2. VIOXX [Suspect]
     Route: 048
     Dates: start: 19991101, end: 20041001
  3. INDOCIN [Concomitant]
     Route: 065
  4. VIAGRA [Concomitant]
     Route: 065
  5. ZESTRIL [Concomitant]
     Route: 048
     Dates: end: 20020714
  6. ZESTRIL [Concomitant]
     Route: 048
     Dates: start: 20020715
  7. NEXIUM [Concomitant]
     Route: 048

REACTIONS (6)
  - ARTERIOSCLEROSIS [None]
  - GASTROOESOPHAGEAL REFLUX DISEASE [None]
  - HYPERTENSION [None]
  - MYOCARDIAL INFARCTION [None]
  - MYOCARDIAL ISCHAEMIA [None]
  - PARAESTHESIA [None]
